FAERS Safety Report 7666728-5 (Version None)
Quarter: 2011Q3

REPORT INFORMATION
  Report Type: 
  Country: None (occurrence: None)
  Receive Date: 20110806
  Receipt Date: 20110629
  Transmission Date: 20111222
  Serious: No
  Sender: FDA-Public Use
  Company Number: US-ABBOTT-11P-163-0835827-00

PATIENT
  Sex: Female
  Weight: 71.732 kg

DRUGS (6)
  1. SIMVASTATIN [Concomitant]
     Indication: BLOOD CHOLESTEROL INCREASED
  2. NIASPAN [Suspect]
     Indication: BLOOD CHOLESTEROL INCREASED
     Dates: start: 20110420, end: 20110507
  3. FISH OIL [Concomitant]
     Indication: BLOOD CHOLESTEROL INCREASED
  4. ASPIRIN [Concomitant]
     Indication: CARDIAC DISORDER
  5. CALTRATE D [Concomitant]
     Indication: MINERAL SUPPLEMENTATION
  6. ASPIRIN [Concomitant]
     Indication: PROPHYLAXIS

REACTIONS (2)
  - SINUSITIS [None]
  - SKIN BURNING SENSATION [None]
